FAERS Safety Report 4873919-5 (Version None)
Quarter: 2006Q1

REPORT INFORMATION
  Report Type: 
  Country: None (occurrence: None)
  Receive Date: 20060104
  Receipt Date: 20051222
  Transmission Date: 20060701
  Serious: Yes (Other)
  Sender: FDA-Public Use
  Company Number: 2005156016

PATIENT
  Age: 3 Month
  Sex: Male

DRUGS (2)
  1. ZYRTEC [Suspect]
     Indication: ILL-DEFINED DISORDER
  2. CORTISONE ACETATE [Suspect]
     Indication: ILL-DEFINED DISORDER

REACTIONS (12)
  - EAR INFECTION [None]
  - ECZEMA [None]
  - GENERALISED OEDEMA [None]
  - HEAD BANGING [None]
  - IMMUNE SYSTEM DISORDER [None]
  - INSOMNIA [None]
  - IRRITABILITY [None]
  - MEDICATION ERROR [None]
  - SCRATCH [None]
  - SWELLING [None]
  - TREMOR [None]
  - WEIGHT INCREASED [None]
